FAERS Safety Report 6235785-5 (Version None)
Quarter: 2009Q2

REPORT INFORMATION
  Report Type: 
  Country: None (occurrence: None)
  Receive Date: 20090619
  Receipt Date: 20090611
  Transmission Date: 20091009
  Serious: Yes (Hospitalization, Disabling)
  Sender: FDA-Public Use
  Company Number: JP-PFIZER INC-2009214609

PATIENT
  Age: 75 Year

DRUGS (13)
  1. BANAN [Suspect]
     Indication: NASOPHARYNGITIS
     Dosage: 100 MG, 3X/DAY
     Route: 048
     Dates: start: 20090503, end: 20090505
  2. BANAN [Suspect]
     Indication: UPPER RESPIRATORY TRACT INFLAMMATION
  3. CRAVIT [Suspect]
     Indication: NASOPHARYNGITIS
     Dosage: 100 MG, 3X/DAY
     Route: 048
     Dates: start: 20090503, end: 20090505
  4. CRAVIT [Suspect]
     Indication: UPPER RESPIRATORY TRACT INFLAMMATION
  5. PELEX [Suspect]
     Indication: UPPER RESPIRATORY TRACT INFLAMMATION
     Dosage: 1 G, 3X/DAY
     Route: 048
     Dates: start: 20090503, end: 20090505
  6. GLIMICRON [Concomitant]
     Indication: HYPERTENSION
     Dosage: 20 MG, 1X/DAY
     Route: 048
  7. FUROSEMIDE [Concomitant]
     Indication: HYPERTENSION
     Dosage: 40 MG, 1X/DAY
     Route: 048
  8. NORVASC [Concomitant]
     Indication: HYPERTENSION
     Dosage: 2.5 MG, 1X/DAY
     Route: 048
  9. ALL OTHER THERAPEUTIC PRODUCTS [Concomitant]
     Indication: CEREBRAL INFARCTION
     Dosage: 100 MG, 2X/DAY
     Route: 048
  10. PICLODIN [Concomitant]
     Indication: CEREBRAL INFARCTION
     Dosage: 100 MG, 2X/DAY
     Route: 048
  11. TECHNIS [Concomitant]
     Indication: CEREBRAL INFARCTION
     Dosage: 20 MG, 3X/DAY
     Route: 048
  12. NAUZELIN [Concomitant]
     Indication: POST GASTRIC SURGERY SYNDROME
     Dosage: 10 MG, 3X/DAY
     Route: 048
  13. VOGLIBOSE [Concomitant]
     Indication: DIABETES MELLITUS
     Dosage: 0.2 MG, 1X/DAY
     Route: 048

REACTIONS (1)
  - OCULOMUCOCUTANEOUS SYNDROME [None]
